FAERS Safety Report 12834222 (Version 3)
Quarter: 2017Q2

REPORT INFORMATION
  Report Type: Spontaneous
  Country: IT (occurrence: IT)
  Receive Date: 20161010
  Receipt Date: 20170404
  Transmission Date: 20170830
  Serious: Yes (Hospitalization, Disabling, Other)
  Sender: FDA-Public Use
  Company Number: IT-TEVA-699819ACC

PATIENT
  Age: 39 Year
  Sex: Male

DRUGS (5)
  1. MUTABON FORTE - 25 MG + 4 MG COMPRESSE RIVESTITE CON FILM [Suspect]
     Active Substance: AMITRIPTYLINE HYDROCHLORIDE\PERPHENAZINE
     Indication: ANXIETY
     Dosage: 4 MG + 25 MG TABLET, 1 TABLET IN THE EVENING
     Route: 048
     Dates: start: 20110101, end: 20131231
  2. BRINTELLIX [Suspect]
     Active Substance: VORTIOXETINE HYDROBROMIDE
     Indication: PRODUCT USED FOR UNKNOWN INDICATION
     Route: 065
  3. GABAPENTIN. [Suspect]
     Active Substance: GABAPENTIN
     Indication: PRODUCT USED FOR UNKNOWN INDICATION
     Route: 065
  4. GABAPENTIN. [Suspect]
     Active Substance: GABAPENTIN
     Dosage: 600 MG 3 TIMES DAILY
     Route: 065
  5. BRINTELLIX [Suspect]
     Active Substance: VORTIOXETINE HYDROBROMIDE
     Dosage: 10 MILLIGRAM DAILY;
     Route: 065

REACTIONS (15)
  - Muscle rigidity [Unknown]
  - Derealisation [Unknown]
  - Asthenia [Unknown]
  - Syncope [Unknown]
  - Headache [Unknown]
  - Toxicity to various agents [Recovered/Resolved with Sequelae]
  - Malaise [Unknown]
  - Paraesthesia [Unknown]
  - Dysgeusia [Unknown]
  - Parosmia [Unknown]
  - Loss of consciousness [Unknown]
  - Suicidal ideation [Not Recovered/Not Resolved]
  - Gait disturbance [Unknown]
  - Vomiting [Unknown]
  - Impaired work ability [Unknown]

NARRATIVE: CASE EVENT DATE: 2011
